FAERS Safety Report 6829242-2 (Version None)
Quarter: 2010Q3

REPORT INFORMATION
  Report Type: 
  Country: None (occurrence: None)
  Receive Date: 20100709
  Receipt Date: 20070308
  Transmission Date: 20110219
  Serious: No
  Sender: FDA-Public Use
  Company Number: US-PFIZER INC-2007019550

PATIENT
  Sex: Female
  Weight: 73.9 kg

DRUGS (5)
  1. CHANTIX [Suspect]
     Indication: SMOKING CESSATION THERAPY
     Dates: start: 20070228
  2. DIAMOX SRC [Concomitant]
  3. IMURAN [Concomitant]
  4. PROZAC [Concomitant]
  5. ZOCOR [Concomitant]
     Indication: BLOOD CHOLESTEROL

REACTIONS (2)
  - HEADACHE [None]
  - NAUSEA [None]
